FAERS Safety Report 6520585-9 (Version None)
Quarter: 2009Q4

REPORT INFORMATION
  Report Type: 
  Country: None (occurrence: None)
  Receive Date: 20091229
  Receipt Date: 20091217
  Transmission Date: 20100525
  Serious: Yes (Hospitalization, Other)
  Sender: FDA-Public Use
  Company Number: SP-200000815

PATIENT
  Sex: Female
  Weight: 74 kg

DRUGS (15)
  1. REMICADE [Suspect]
     Indication: CROHN'S DISEASE
     Route: 041
     Dates: start: 20000412
  2. PREDNISONE [Concomitant]
     Route: 048
     Dates: start: 20000323
  3. AMPICILLIN [Concomitant]
     Route: 065
     Dates: start: 20000101
  4. PURINETHOL [Concomitant]
     Route: 048
     Dates: start: 20000401
  5. DIABETA [Concomitant]
     Route: 048
  6. PREDNISONE [Concomitant]
     Route: 048
  7. PREDNISONE [Concomitant]
     Route: 048
  8. PREDNISONE [Concomitant]
     Route: 048
  9. CALCITONIN [Concomitant]
     Route: 065
  10. FLUIDS [Concomitant]
     Route: 065
  11. SOLU-CORTEF [Concomitant]
     Route: 065
     Dates: start: 20000101
  12. AMOXICILLIN [Concomitant]
     Route: 065
     Dates: start: 20000101
  13. GENTAMICIN [Concomitant]
     Route: 065
     Dates: start: 20000101
  14. AMOXICILLIN [Concomitant]
     Route: 065
     Dates: start: 20000501
  15. FLAGYL [Concomitant]
     Route: 065

REACTIONS (6)
  - FALL [None]
  - HYPOGLYCAEMIA [None]
  - LISTERIA SEPSIS [None]
  - PSEUDOMEMBRANOUS COLITIS [None]
  - PYREXIA [None]
  - SPINAL FRACTURE [None]
